FAERS Safety Report 22017324 (Version 1)
Quarter: 2023Q1

REPORT INFORMATION
  Report Type: Spontaneous
  Country: CA (occurrence: CA)
  Receive Date: 20230221
  Receipt Date: 20230221
  Transmission Date: 20230418
  Serious: Yes (Other)
  Sender: FDA-Public Use
  Company Number: CA-PFIZER INC-202300071932

PATIENT
  Age: 34 Year
  Sex: Male
  Weight: 163.6 kg

DRUGS (6)
  1. METHOTREXATE SODIUM [Suspect]
     Active Substance: METHOTREXATE SODIUM
     Dosage: 25 MG, WEEKLY
     Route: 048
     Dates: start: 2019, end: 202208
  2. ARAVA [Suspect]
     Active Substance: LEFLUNOMIDE
     Dosage: STOPPED
  3. CANDESARTAN [Concomitant]
     Active Substance: CANDESARTAN
     Dosage: 8 MG, 1X/DAY 1DF
     Route: 048
  4. CORTISONE [Concomitant]
     Active Substance: CORTISONE
     Dosage: 2 INJECTIONS. FIRST INJECTION AT DIAGNOSIS, SECOND INJECTION BEFORE STARTING SIMPONI
  5. LITHIUM [Concomitant]
     Active Substance: LITHIUM
     Dosage: 600 MG, 1X/DAY 1DF
     Route: 048
  6. SIMPONI [Concomitant]
     Active Substance: GOLIMUMAB
     Dosage: UNK, MONTHLY
     Dates: end: 20230128

REACTIONS (1)
  - Liver injury [Unknown]
